FAERS Safety Report 9205919 (Version 2)
Quarter: 2014Q1

REPORT INFORMATION
  Report Type: Spontaneous
  Country: US (occurrence: US)
  Receive Date: 20130403
  Receipt Date: 20140321
  Transmission Date: 20141002
  Serious: No
  Sender: FDA-Public Use
  Company Number: US-009507513-1304USA000174

PATIENT
  Sex: Female

DRUGS (1)
  1. SINGULAIR [Suspect]

REACTIONS (1)
  - Urticaria [Unknown]
